FAERS Safety Report 6181606-9 (Version None)
Quarter: 2009Q2

REPORT INFORMATION
  Report Type: 
  Country: None (occurrence: None)
  Receive Date: 20090506
  Receipt Date: 20090428
  Transmission Date: 20091009
  Serious: Yes (Hospitalization)
  Sender: FDA-Public Use
  Company Number: A0781028A

PATIENT
  Age: 67 Year
  Sex: Female

DRUGS (5)
  1. ADVAIR HFA [Suspect]
     Indication: ASTHMA
     Dosage: 1PUFF TWICE PER DAY
     Route: 055
     Dates: start: 20090401, end: 20090410
  2. DIOVAN [Concomitant]
  3. LEVOXYL [Concomitant]
  4. SELDANE [Concomitant]
  5. SINGULAIR [Concomitant]

REACTIONS (5)
  - ABASIA [None]
  - DYSPNOEA [None]
  - MALAISE [None]
  - PAIN IN EXTREMITY [None]
  - PULMONARY THROMBOSIS [None]
